FAERS Safety Report 7081325-0 (Version None)
Quarter: 2010Q4

REPORT INFORMATION
  Report Type: 
  Country: None (occurrence: None)
  Receive Date: 20101103
  Receipt Date: 20101021
  Transmission Date: 20110411
  Serious: Yes (Other)
  Sender: FDA-Public Use
  Company Number: PHHY2010JP59813

PATIENT
  Sex: Female

DRUGS (4)
  1. DIOVAN [Suspect]
     Indication: HYPERTENSION
     Dosage: 80 MG DAILY
     Route: 048
     Dates: end: 20100913
  2. NORVASC [Suspect]
     Indication: HYPERTENSION
     Dosage: UNK
     Route: 048
  3. DEPAS [Suspect]
     Dosage: 1 MG
     Route: 048
  4. RHYTHMY [Suspect]
     Dosage: 2 MG
     Route: 048

REACTIONS (5)
  - AUTOIMMUNE DISORDER [None]
  - BLISTER [None]
  - PEMPHIGOID [None]
  - PEMPHIGUS [None]
  - PIGMENTATION DISORDER [None]
